FAERS Safety Report 7975763-9 (Version None)
Quarter: 2011Q4

REPORT INFORMATION
  Report Type: 
  Country: None (occurrence: None)
  Receive Date: 20111213
  Receipt Date: 20110929
  Transmission Date: 20120403
  Serious: No
  Sender: FDA-Public Use
  Company Number: US-AMGEN-USASP2011048615

PATIENT
  Age: 47 Year
  Sex: Female

DRUGS (3)
  1. ENBREL [Suspect]
     Indication: PSORIATIC ARTHROPATHY
     Dosage: 50 MG, 2 TIMES/WK
     Dates: start: 20110905
  2. HUMIRA [Concomitant]
     Dosage: 40 MG, UNK
     Route: 058
  3. TACLONEX [Concomitant]
     Indication: PSORIASIS
     Dosage: 100 G, APPLICATION ONCE DAILY, AS NEEDED

REACTIONS (7)
  - INJECTION SITE HAEMATOMA [None]
  - INJECTION SITE URTICARIA [None]
  - INJECTION SITE REACTION [None]
  - SEBORRHOEIC DERMATITIS [None]
  - INJECTION SITE WARMTH [None]
  - INJECTION SITE ERYTHEMA [None]
  - INJECTION SITE PRURITUS [None]
